FAERS Safety Report 5979011-0 (Version None)
Quarter: 2008Q4

REPORT INFORMATION
  Report Type: 
  Country: None (occurrence: None)
  Receive Date: 20081204
  Receipt Date: 20081128
  Transmission Date: 20090506
  Serious: Yes (Other)
  Sender: FDA-Public Use
  Company Number: SK-JNJFOC-20081200423

PATIENT
  Age: 47 Year

DRUGS (3)
  1. DURAGESIC-100 [Suspect]
     Indication: PAIN
     Route: 062
  2. MORFIN [Suspect]
     Dosage: 3MG TO 5 MG THEN TO 7 MG
     Route: 059
  3. MORFIN [Suspect]
     Indication: DRUG USE FOR UNKNOWN INDICATION
     Route: 059

REACTIONS (6)
  - BRADYCARDIA [None]
  - DEPRESSED LEVEL OF CONSCIOUSNESS [None]
  - HYPOTENSION [None]
  - SOMNOLENCE [None]
  - VERTIGO [None]
  - WITHDRAWAL SYNDROME [None]
